FAERS Safety Report 9645674 (Version 1)
Quarter: 2013Q4

REPORT INFORMATION
  Report Type: Spontaneous
  Country: GB (occurrence: GB)
  Receive Date: 20131025
  Receipt Date: 20131025
  Transmission Date: 20140711
  Serious: Yes (Life-Threatening, Other)
  Sender: FDA-Public Use
  Company Number: PHFR2013GB006020

PATIENT
  Age: 1 Hour
  Sex: Female
  Weight: 2.76 kg

DRUGS (2)
  1. TEGRETOL [Suspect]
     Dosage: UNK UKN, UNK
     Route: 064
  2. KEPPRA [Suspect]
     Dosage: UNK UKN, UNK
     Route: 064

REACTIONS (1)
  - Tachycardia foetal [Unknown]
